FAERS Safety Report 20166826 (Version 2)
Quarter: 2022Q1

REPORT INFORMATION
  Report Type: Spontaneous
  Country: US (occurrence: US)
  Receive Date: 20211209
  Receipt Date: 20220204
  Transmission Date: 20220423
  Serious: Yes (Other)
  Sender: FDA-Public Use
  Company Number: US-ORGANON-O2112USA000752

PATIENT
  Age: 31 Year
  Sex: Male

DRUGS (4)
  1. ASMANEX [Suspect]
     Active Substance: MOMETASONE FUROATE
     Indication: Dyspnoea
     Dosage: USED EVERY DAY
     Dates: start: 202109, end: 202109
  2. ASMANEX [Suspect]
     Active Substance: MOMETASONE FUROATE
     Indication: Dyspnoea
     Dosage: USED EVERY DAY
     Dates: start: 20210924, end: 202109
  3. ASMANEX [Suspect]
     Active Substance: MOMETASONE FUROATE
     Dosage: USED EVERY DAY
     Dates: start: 20210924
  4. ASMANEX [Concomitant]
     Active Substance: MOMETASONE FUROATE
     Indication: Dyspnoea
     Dosage: UNK
     Dates: start: 202108, end: 2021

REACTIONS (8)
  - Haematemesis [Unknown]
  - Device malfunction [Unknown]
  - Poor quality device used [Unknown]
  - Product dose omission issue [Unknown]
  - Device malfunction [Unknown]
  - Poor quality device used [Unknown]
  - Product dose omission issue [Unknown]
  - Product packaging issue [Unknown]

NARRATIVE: CASE EVENT DATE: 20210901
